FAERS Safety Report 24997050 (Version 2)
Quarter: 2025Q1

REPORT INFORMATION
  Report Type: Report from Study
  Country: US (occurrence: US)
  Receive Date: 20250221
  Receipt Date: 20250311
  Transmission Date: 20250409
  Serious: Yes (Hospitalization)
  Sender: EISAI
  Company Number: US-Eisai-EC-2025-184612

PATIENT
  Age: 57 Year
  Sex: Female
  Weight: 56.69 kg

DRUGS (9)
  1. LENVIMA [Suspect]
     Active Substance: LENVATINIB
     Indication: Thyroid cancer
     Dates: start: 20241127, end: 20250209
  2. CALCIUM CARBONATE\ERGOCALCIFEROL\RETINOL [Concomitant]
     Active Substance: CALCIUM CARBONATE\ERGOCALCIFEROL\RETINOL
  3. GABAPENTIN [Concomitant]
     Active Substance: GABAPENTIN
  4. LEVOTHYROXINE [Concomitant]
     Active Substance: LEVOTHYROXINE
  5. NAPROXEN [Concomitant]
     Active Substance: NAPROXEN
  6. ONDANSETRON [Concomitant]
     Active Substance: ONDANSETRON
  7. TUMS [Concomitant]
     Active Substance: CALCIUM CARBONATE
  8. TYLENOL [Concomitant]
     Active Substance: ACETAMINOPHEN
  9. XANAX [Concomitant]
     Active Substance: ALPRAZOLAM

REACTIONS (3)
  - Posterior reversible encephalopathy syndrome [Recovered/Resolved]
  - Seizure [Recovered/Resolved]
  - Lethargy [Recovering/Resolving]

NARRATIVE: CASE EVENT DATE: 20250101
